FAERS Safety Report 5198760-8 (Version None)
Quarter: 2007Q1

REPORT INFORMATION
  Report Type: 
  Country: None (occurrence: None)
  Receive Date: 20070104
  Receipt Date: 20061229
  Transmission Date: 20070707
  Serious: Yes (Disabling)
  Sender: FDA-Public Use
  Company Number: JP-JPN-A200605047

PATIENT
  Age: 37 Year
  Sex: Female

DRUGS (5)
  1. SULTANOL INHALER [Suspect]
     Indication: ASTHMA
     Dosage: 50MCG TWICE PER DAY
     Route: 055
  2. SEREVENT [Suspect]
     Indication: ASTHMA
     Dosage: 50MCG TWICE PER DAY
     Route: 055
     Dates: end: 20061023
  3. FLUTIDE [Concomitant]
     Route: 055
  4. PREDNISOLONE [Concomitant]
     Route: 065
  5. ONON [Concomitant]
     Indication: ASTHMA
     Dates: start: 20061120

REACTIONS (3)
  - DISCOMFORT [None]
  - HYPOAESTHESIA [None]
  - MUSCULOSKELETAL STIFFNESS [None]
